FAERS Safety Report 10380737 (Version 1)
Quarter: 2014Q1

REPORT INFORMATION
  Report Type: Spontaneous
  Country: US (occurrence: None)
  Receive Date: 20140306
  Receipt Date: 20140306
  Transmission Date: 20141002
  Serious: Yes (Other)
  Sender: FDA-Public Use
  Company Number: 163-21880-13111336

PATIENT
  Age: 70 Year
  Sex: Female

DRUGS (4)
  1. REVLIMID (LENALIDOMIDE) CAPSULES [Suspect]
     Indication: LYMPHOMA
     Dosage: 21 IN 28D
     Dates: start: 20120209
  2. TRICOR (FENOFIBRATE) [Concomitant]
  3. BACTRIM (BACTRIM) [Concomitant]
  4. GABAPENTIN (GABAPENTIN) [Concomitant]

REACTIONS (3)
  - Breast calcifications [None]
  - Loose tooth [None]
  - Cataract [None]
